FAERS Safety Report 5884267-9 (Version None)
Quarter: 2008Q3

REPORT INFORMATION
  Report Type: 
  Country: None (occurrence: None)
  Receive Date: 20080915
  Receipt Date: 20080903
  Transmission Date: 20090109
  Serious: Yes (Other)
  Sender: FDA-Public Use
  Company Number: JP-SANOFI-SYNTHELABO-A01200801540

PATIENT
  Sex: Male

DRUGS (12)
  1. ALINAMIN F [Concomitant]
     Indication: SCIATICA
     Route: 042
     Dates: start: 20070404, end: 20080222
  2. HALCION [Concomitant]
     Indication: INSOMNIA
     Route: 048
     Dates: start: 20050531
  3. ERIMIN [Concomitant]
     Indication: INSOMNIA
     Route: 048
     Dates: start: 20060418
  4. SIGMART [Concomitant]
     Indication: DRUG USE FOR UNKNOWN INDICATION
     Route: 048
     Dates: start: 20070510
  5. ADALAT [Concomitant]
     Indication: DRUG USE FOR UNKNOWN INDICATION
     Route: 048
     Dates: start: 20070711
  6. ARTIST [Concomitant]
     Indication: DRUG USE FOR UNKNOWN INDICATION
     Route: 065
     Dates: start: 20070705, end: 20070711
  7. PENTAZOCINE LACTATE [Suspect]
     Indication: PORPHYRIA ACUTE
     Route: 042
     Dates: start: 20050521
  8. PENTAZOCINE LACTATE [Suspect]
     Indication: PANCREATITIS CHRONIC
     Route: 042
     Dates: start: 20050521
  9. PENTAZOCINE LACTATE [Suspect]
     Indication: DRUG USE FOR UNKNOWN INDICATION
     Route: 042
     Dates: start: 20050521
  10. PENTAZOCINE LACTATE [Suspect]
     Route: 042
     Dates: end: 20070827
  11. PENTAZOCINE LACTATE [Suspect]
     Route: 042
     Dates: end: 20070827
  12. PENTAZOCINE LACTATE [Suspect]
     Route: 042
     Dates: end: 20070827

REACTIONS (4)
  - ANGINA PECTORIS [None]
  - CHEST PAIN [None]
  - DRUG TOXICITY [None]
  - ELECTROCARDIOGRAM T WAVE INVERSION [None]
